FAERS Safety Report 7198642-6 (Version None)
Quarter: 2010Q4

REPORT INFORMATION
  Report Type: 
  Country: None (occurrence: None)
  Receive Date: 20101227
  Receipt Date: 20101026
  Transmission Date: 20110411
  Serious: No
  Sender: FDA-Public Use
  Company Number: US-ABBOTT-10P-163-0682175-00

PATIENT
  Sex: Female
  Weight: 100.33 kg

DRUGS (1)
  1. BIAXIN [Suspect]
     Indication: KIDNEY INFECTION
     Route: 048
     Dates: start: 19980101, end: 19980101

REACTIONS (2)
  - PRURITUS [None]
  - VOMITING [None]
